FAERS Safety Report 22123012 (Version 1)
Quarter: 2023Q1

REPORT INFORMATION
  Report Type: Other
  Country: JP (occurrence: JP)
  Receive Date: 20230322
  Receipt Date: 20230322
  Transmission Date: 20230418
  Serious: Yes (Other)
  Sender: FDA-Public Use
  Company Number: JP-ALVOGEN-2023089439

PATIENT
  Age: 75 Year
  Sex: Male

DRUGS (3)
  1. METHOTREXATE [Suspect]
     Active Substance: METHOTREXATE
     Indication: Seronegative arthritis
  2. TACROLIMUS [Suspect]
     Active Substance: TACROLIMUS
     Indication: Seronegative arthritis
  3. UNSPECIFIED INGREDIENT [Suspect]
     Active Substance: UNSPECIFIED INGREDIENT
     Indication: Seronegative arthritis

REACTIONS (3)
  - Angioimmunoblastic T-cell lymphoma [Unknown]
  - Malaise [Unknown]
  - Off label use [Unknown]
